FAERS Safety Report 6752328-8 (Version None)
Quarter: 2010Q2

REPORT INFORMATION
  Report Type: 
  Country: None (occurrence: None)
  Receive Date: 20100602
  Receipt Date: 20100526
  Transmission Date: 20101027
  Serious: Yes (Hospitalization)
  Sender: FDA-Public Use
  Company Number: GXBR2010US01068

PATIENT
  Sex: Male
  Weight: 81.633 kg

DRUGS (6)
  1. AMOXICILLIN [Suspect]
     Indication: PROPHYLAXIS
     Dosage: 500 MG, QD2SDO
     Route: 048
     Dates: start: 20100401, end: 20100401
  2. AMOXICILLIN [Suspect]
     Dosage: 500 MG, UNK
     Route: 048
     Dates: start: 20070101, end: 20070101
  3. AMOXICILLIN [Suspect]
     Dosage: 500 MG, UNK
     Route: 048
     Dates: start: 20060101, end: 20060101
  4. VERAPAMIL [Concomitant]
     Indication: CARDIAC MURMUR
     Dosage: 240 MG, QD
     Route: 048
  5. TOPROL-XL [Concomitant]
     Indication: CARDIAC MURMUR
     Dosage: UNK MG, QD
     Route: 048
  6. LOVASTATIN [Concomitant]
     Indication: BLOOD CHOLESTEROL INCREASED
     Dosage: 40 MG, QD2SDO
     Route: 048

REACTIONS (1)
  - MYOCARDIAL INFARCTION [None]
